FAERS Safety Report 9217336 (Version 2)
Quarter: 2013Q2

REPORT INFORMATION
  Report Type: Spontaneous
  Country: US (occurrence: US)
  Receive Date: 20130408
  Receipt Date: 20130412
  Transmission Date: 20140414
  Serious: Yes (Death, Other)
  Sender: FDA-Public Use
  Company Number: US-TEVA-394637USA

PATIENT
  Age: 56 Year
  Sex: Female
  Weight: 60.7 kg

DRUGS (8)
  1. ZOLPIDEM [Suspect]
  2. TRAMADOL [Suspect]
  3. CITALOPRAM [Suspect]
  4. BUTALBITAL [Suspect]
  5. CARISOPRODOL [Suspect]
  6. TEMAZEPAM [Suspect]
  7. HYDROCODONE [Suspect]
  8. DIPHENHYDRAMINE [Suspect]

REACTIONS (3)
  - Completed suicide [Fatal]
  - Toxicity to various agents [Fatal]
  - Intentional overdose [Fatal]
